FAERS Safety Report 12402655 (Version 1)
Quarter: 2016Q2

REPORT INFORMATION
  Report Type: Spontaneous
  Country: US (occurrence: US)
  Receive Date: 20160525
  Receipt Date: 20160525
  Transmission Date: 20160815
  Serious: No
  Sender: FDA-Public Use
  Company Number: US-TEVA-579909USA

PATIENT
  Age: 95 Year
  Sex: Female
  Weight: 61.29 kg

DRUGS (2)
  1. OSTEO BI-FLEX [Concomitant]
     Active Substance: CHONDROITIN SULFATE A\GLUCOSAMINE
  2. CLOPIDOGREL [Suspect]
     Active Substance: CLOPIDOGREL BISULFATE
     Dates: start: 2013

REACTIONS (13)
  - Contusion [Unknown]
  - Abdominal pain upper [Unknown]
  - Dysphonia [Unknown]
  - Balance disorder [Unknown]
  - Memory impairment [Unknown]
  - Weight decreased [Unknown]
  - Confusional state [Unknown]
  - Epistaxis [Unknown]
  - Walking aid user [Unknown]
  - Decreased appetite [Unknown]
  - Dyspnoea [Unknown]
  - Vision blurred [Unknown]
  - Grip strength decreased [Unknown]
